FAERS Safety Report 14382485 (Version 3)
Quarter: 2018Q3

REPORT INFORMATION
  Report Type: Report from Study
  Country: DE (occurrence: DE)
  Receive Date: 20180112
  Receipt Date: 20180813
  Transmission Date: 20181010
  Serious: Yes (Hospitalization)
  Sender: FDA-Public Use
  Company Number: PHHY2018DE003986

PATIENT
  Age: 69 Year
  Sex: Female
  Weight: 94 kg

DRUGS (10)
  1. ALDACTONE [Concomitant]
     Active Substance: SPIRONOLACTONE
     Indication: CARDIAC FAILURE
     Dosage: 25 MG, QD
     Route: 048
     Dates: start: 20120203
  2. ENTRESTO [Suspect]
     Active Substance: SACUBITRIL\VALSARTAN
     Dosage: 100 MG, BID (SACUBITRIL 49 MG, VALSARTAN 51 MG)
     Route: 048
     Dates: start: 20170607, end: 20170612
  3. METOPROLOL SUCC CT [Concomitant]
     Indication: ATRIAL FIBRILLATION
     Dosage: 47.5 OT,  (2X 1/2U)
     Route: 048
     Dates: start: 20111207
  4. ENTRESTO [Suspect]
     Active Substance: SACUBITRIL\VALSARTAN
     Dosage: 100 MG, BID (SACUBITRIL 49 MG, VALSARTAN 51 MG)
     Route: 048
     Dates: start: 20170202, end: 20170402
  5. INSULIN [Concomitant]
     Active Substance: INSULIN NOS
     Indication: TYPE 2 DIABETES MELLITUS
     Dosage: UNK, QHS (NORMAL INSULIN ACCORDING TO BLOOD SUGAR; BASAL INSULIN AT NIGHT)
     Route: 065
  6. TORASEMIDE [Concomitant]
     Active Substance: TORSEMIDE
     Indication: CARDIAC FAILURE
     Dosage: 10 G, QD
     Route: 048
     Dates: start: 20130208
  7. ENTRESTO [Suspect]
     Active Substance: SACUBITRIL\VALSARTAN
     Dosage: 200 MG, BID (SACUBITRIL 97 MG, VALSARTAN 103 MG)
     Route: 048
     Dates: start: 20170613, end: 20171117
  8. METOPROLOL SUCC CT [Concomitant]
     Indication: CARDIAC FAILURE
  9. ENTRESTO [Suspect]
     Active Substance: SACUBITRIL\VALSARTAN
     Indication: CARDIAC FAILURE
     Dosage: 50 MG, BID (SACUBITRIL 24 MG, VALSARTAN 26 MG)
     Route: 048
     Dates: start: 20170118, end: 20170201
  10. ENTRESTO [Suspect]
     Active Substance: SACUBITRIL\VALSARTAN
     Dosage: 100 MG, BID (SACUBITRIL 49 MG, VALSARTAN 51 MG)
     Route: 048
     Dates: start: 20171129, end: 20180118

REACTIONS (3)
  - Dyspnoea [Not Recovered/Not Resolved]
  - Syncope [Recovered/Resolved]
  - Cardiac failure [Recovered/Resolved]

NARRATIVE: CASE EVENT DATE: 20171001
